FAERS Safety Report 16337386 (Version 4)
Quarter: 2019Q2

REPORT INFORMATION
  Report Type: Spontaneous
  Country: ES (occurrence: ES)
  Receive Date: 20190521
  Receipt Date: 20190611
  Transmission Date: 20190711
  Serious: Yes (Life-Threatening, Other)
  Sender: FDA-Public Use
  Company Number: ES-PFIZER INC-2019210754

PATIENT
  Age: 39 Year
  Sex: Female

DRUGS (2)
  1. INFLIXIMAB PFIZER [Suspect]
     Active Substance: INFLIXIMAB
     Indication: COLITIS ULCERATIVE
     Dosage: 10 MG/KG, UNK (10MG PER KG OF WEIGHT)
     Route: 042
     Dates: start: 201612
  2. INFLIXIMAB PFIZER [Suspect]
     Active Substance: INFLIXIMAB
     Dosage: 10 MG/KG, UNK (SECOND 10 MG PER KG OF WEIGHT, INFUSION)

REACTIONS (5)
  - Tachycardia [Recovering/Resolving]
  - Anaemia [Recovering/Resolving]
  - Haemorrhage [Recovering/Resolving]
  - Hypotension [Recovering/Resolving]
  - Therapeutic product effect incomplete [Recovering/Resolving]
